FAERS Safety Report 10291735 (Version 2)
Quarter: 2014Q4

REPORT INFORMATION
  Report Type: Spontaneous
  Country: US (occurrence: US)
  Receive Date: 20140710
  Receipt Date: 20141013
  Transmission Date: 20150528
  Serious: No
  Sender: FDA-Public Use
  Company Number: US-GILEAD-2014-0108134

PATIENT
  Sex: Female

DRUGS (5)
  1. RIOCIGUAT [Concomitant]
     Active Substance: RIOCIGUAT
  2. LETAIRIS [Suspect]
     Active Substance: AMBRISENTAN
     Indication: PULMONARY HYPERTENSION
     Route: 065
     Dates: start: 20100804
  3. PROSTACYCLIN [Concomitant]
     Active Substance: EPOPROSTENOL
     Route: 048
  4. LETAIRIS [Suspect]
     Active Substance: AMBRISENTAN
     Indication: HEART DISEASE CONGENITAL
  5. TYVASO [Concomitant]
     Active Substance: TREPROSTINIL

REACTIONS (2)
  - Catheterisation cardiac [Unknown]
  - Malaise [Unknown]
